FAERS Safety Report 8936747 (Version 2)
Quarter: 2012Q4

REPORT INFORMATION
  Report Type: Report from Study
  Country: US (occurrence: US)
  Receive Date: 20121130
  Receipt Date: 20121206
  Transmission Date: 20130627
  Serious: Yes (Death)
  Sender: FDA-Public Use
  Company Number: US-ROCHE-1101115

PATIENT
  Age: 58 Year
  Sex: Female
  Weight: 63.56 kg

DRUGS (3)
  1. CAPECITABINE [Suspect]
     Indication: BREAST CANCER METASTATIC
     Route: 048
     Dates: start: 20120709
  2. CLARITIN [Concomitant]
     Indication: SINUSITIS
     Dosage: therapy ongoing
     Route: 048
  3. PROTONIX [Concomitant]
     Route: 048

REACTIONS (8)
  - Breast cancer metastatic [Fatal]
  - Vision blurred [Not Recovered/Not Resolved]
  - Decreased appetite [Not Recovered/Not Resolved]
  - Insomnia [Not Recovered/Not Resolved]
  - Weight decreased [Unknown]
  - Dizziness [Recovered/Resolved]
  - Asthenia [Recovered/Resolved]
  - Sinusitis [Not Recovered/Not Resolved]
